FAERS Safety Report 12691051 (Version 3)
Quarter: 2016Q3

REPORT INFORMATION
  Report Type: Report from Study
  Country: CL (occurrence: CL)
  Receive Date: 20160826
  Receipt Date: 20160926
  Transmission Date: 20161109
  Serious: Yes (Other)
  Sender: FDA-Public Use
  Company Number: CL-ABBVIE-16K-034-1705194-00

PATIENT
  Age: 43 Year
  Sex: Male

DRUGS (1)
  1. HUMIRA [Suspect]
     Active Substance: ADALIMUMAB
     Indication: ANKYLOSING SPONDYLITIS
     Route: 058
     Dates: start: 20120715, end: 201609

REACTIONS (5)
  - Abdominal distension [Recovered/Resolved]
  - Thoracic vertebral fracture [Not Recovered/Not Resolved]
  - Back pain [Recovering/Resolving]
  - Abdominal mass [Not Recovered/Not Resolved]
  - Blood urine present [Recovered/Resolved]

NARRATIVE: CASE EVENT DATE: 201607
